FAERS Safety Report 5813262-0 (Version None)
Quarter: 2008Q3

REPORT INFORMATION
  Report Type: 
  Country: None (occurrence: None)
  Receive Date: 20080717
  Receipt Date: 20080708
  Transmission Date: 20090109
  Serious: Yes (Hospitalization)
  Sender: FDA-Public Use
  Company Number: US-BAYER-200825939NA

PATIENT
  Sex: Female

DRUGS (3)
  1. AVELOX [Suspect]
     Indication: DRUG USE FOR UNKNOWN INDICATION
     Route: 048
     Dates: start: 20080523
  2. LEXAPRO [Concomitant]
     Dosage: UNIT DOSE: 10 MG
     Route: 048
  3. PREVACID [Concomitant]
     Route: 048

REACTIONS (7)
  - APHASIA [None]
  - EYELID OEDEMA [None]
  - HYPERSENSITIVITY [None]
  - HYPOKINESIA [None]
  - PALMAR ERYTHEMA [None]
  - PRURITUS [None]
  - TRANSIENT ISCHAEMIC ATTACK [None]
